FAERS Safety Report 7308301-4 (Version None)
Quarter: 2011Q1

REPORT INFORMATION
  Report Type: 
  Country: None (occurrence: None)
  Receive Date: 20110223
  Receipt Date: 20110216
  Transmission Date: 20110831
  Serious: Yes (Death)
  Sender: FDA-Public Use
  Company Number: A0907576A

PATIENT
  Age: 73 Year
  Sex: Female
  Weight: 55.9 kg

DRUGS (7)
  1. ASPIRIN [Concomitant]
  2. IBUPROFEN [Concomitant]
  3. METOPROLOL [Concomitant]
  4. PROAIR HFA [Concomitant]
  5. PRAVASTATIN [Concomitant]
  6. ADVAIR HFA [Suspect]
     Indication: CHRONIC OBSTRUCTIVE PULMONARY DISEASE
     Dosage: 1PUFF TWICE PER DAY
     Route: 055
     Dates: start: 20081016, end: 20080101
  7. VALSARTAN [Concomitant]

REACTIONS (3)
  - DEATH [None]
  - DYSPNOEA [None]
  - DIZZINESS [None]
